FAERS Safety Report 12617448 (Version 1)
Quarter: 2016Q3

REPORT INFORMATION
  Report Type: Spontaneous
  Country: IN (occurrence: None)
  Receive Date: 20160802
  Receipt Date: 20160802
  Transmission Date: 20161109
  Serious: No
  Sender: FDA-Public Use
  Company Number: None

PATIENT
  Age: 22 Year
  Sex: Female
  Weight: 52 kg

DRUGS (1)
  1. MEDERMA [Suspect]
     Active Substance: AVOBENZONE\OCTOCRYLENE\OXYBENZONE
     Indication: ACNE
     Dosage: THREE TIMES A DAY APPLIED TO A SURFACE, USUALLY THE SKIN
     Dates: start: 20160801, end: 20160802

REACTIONS (1)
  - Pruritus [None]

NARRATIVE: CASE EVENT DATE: 20160801
